FAERS Safety Report 4413895-2 (Version None)
Quarter: 2004Q3

REPORT INFORMATION
  Report Type: 
  Country: None (occurrence: None)
  Receive Date: 20040729
  Receipt Date: 20040720
  Transmission Date: 20050211
  Serious: Yes (Death, Hospitalization)
  Sender: FDA-Public Use
  Company Number: HQWYE296521JUL04

PATIENT
  Age: 30 Year
  Sex: Female

DRUGS (3)
  1. ADVIL [Suspect]
     Indication: CHILLS
     Dosage: ORAL
     Route: 048
     Dates: start: 20040107, end: 20040109
  2. ADVIL [Suspect]
     Indication: PYREXIA
     Dosage: ORAL
     Route: 048
     Dates: start: 20040107, end: 20040109
  3. ACETAMINOPHEN [Concomitant]

REACTIONS (9)
  - ACUTE RESPIRATORY DISTRESS SYNDROME [None]
  - BETA HAEMOLYTIC STREPTOCOCCAL INFECTION [None]
  - CONDITION AGGRAVATED [None]
  - CULTURE POSITIVE [None]
  - DISSEMINATED INTRAVASCULAR COAGULATION [None]
  - LEUKOPENIA [None]
  - METABOLIC ACIDOSIS [None]
  - PROTHROMBIN LEVEL DECREASED [None]
  - SHOCK [None]
